FAERS Safety Report 23128310 (Version 2)
Quarter: 2023Q4

REPORT INFORMATION
  Report Type: Spontaneous
  Country: JP (occurrence: JP)
  Receive Date: 20231031
  Receipt Date: 20231129
  Transmission Date: 20240110
  Serious: Yes (Death)
  Sender: FDA-Public Use
  Company Number: JP-NBI-BJ202318130

PATIENT
  Age: 85 Year
  Sex: Male

DRUGS (1)
  1. IDARUCIZUMAB [Suspect]
     Active Substance: IDARUCIZUMAB
     Indication: Procoagulant therapy
     Route: 042
     Dates: start: 20230915

REACTIONS (1)
  - Enterocolitis [Fatal]

NARRATIVE: CASE EVENT DATE: 20231001
